FAERS Safety Report 17091076 (Version 1)
Quarter: 2019Q4

REPORT INFORMATION
  Report Type: Spontaneous
  Country: BR (occurrence: BR)
  Receive Date: 20191129
  Receipt Date: 20191129
  Transmission Date: 20200122
  Serious: Yes (Other)
  Sender: FDA-Public Use
  Company Number: BR-AMGEN-BRASP2016004087

PATIENT
  Age: 44 Year
  Sex: Female
  Weight: 55 kg

DRUGS (1)
  1. ENBREL [Suspect]
     Active Substance: ETANERCEPT
     Indication: RHEUMATOID ARTHRITIS
     Dosage: 25 MILLIGRAM, 2 TIMES/WK
     Route: 065
     Dates: start: 20151005

REACTIONS (6)
  - Ligament sprain [Unknown]
  - Food allergy [Unknown]
  - Tibia fracture [Unknown]
  - Fall [Unknown]
  - Food poisoning [Unknown]
  - Fibula fracture [Unknown]

NARRATIVE: CASE EVENT DATE: 20160101
